FAERS Safety Report 26063838 (Version 1)
Quarter: 2025Q4

REPORT INFORMATION
  Report Type: Spontaneous
  Country: EU (occurrence: EU)
  Receive Date: 20251119
  Receipt Date: 20251119
  Transmission Date: 20260117
  Serious: Yes (Disabling, Other)
  Sender: SUNOVION
  Company Number: None

PATIENT
  Age: 25 Year
  Sex: Female
  Weight: 60 kg

DRUGS (3)
  1. ESTRADIOL\NORETHINDRONE ACETATE\RELUGOLIX [Suspect]
     Active Substance: ESTRADIOL\NORETHINDRONE ACETATE\RELUGOLIX
     Indication: Endometriosis
     Dosage: 1 DF, QD
     Route: 048
     Dates: start: 20250718
  2. RUPATADINE [Concomitant]
     Active Substance: RUPATADINE
  3. DYMISTA [Concomitant]
     Active Substance: AZELASTINE HYDROCHLORIDE\FLUTICASONE PROPIONATE

REACTIONS (9)
  - Abnormal dreams [Recovering/Resolving]
  - Poor quality sleep [Recovering/Resolving]
  - Panic attack [Recovering/Resolving]
  - Major depression [Recovering/Resolving]
  - Dyspareunia [Recovering/Resolving]
  - Migraine [Recovering/Resolving]
  - Anxiety [Recovering/Resolving]
  - Affect lability [Recovering/Resolving]
  - Night sweats [Recovering/Resolving]
